FAERS Safety Report 6583723-8 (Version None)
Quarter: 2010Q1

REPORT INFORMATION
  Report Type: 
  Country: None (occurrence: None)
  Receive Date: 20100212
  Receipt Date: 20100212
  Transmission Date: 20100710
  Serious: No
  Sender: FDA-Public Use
  Company Number: None

PATIENT
  Sex: Female

DRUGS (1)
  1. ACT MOUTHWASH [Suspect]
     Dosage: ONCE
     Dates: start: 20100201, end: 20100201

REACTIONS (7)
  - HYPERHIDROSIS [None]
  - INCORRECT ROUTE OF DRUG ADMINISTRATION [None]
  - MALAISE [None]
  - MOVEMENT DISORDER [None]
  - PRODUCT LABEL ISSUE [None]
  - TREMOR [None]
  - WRONG TECHNIQUE IN DRUG USAGE PROCESS [None]
